FAERS Safety Report 21453961 (Version 1)
Quarter: 2022Q4

REPORT INFORMATION
  Report Type: Spontaneous
  Country: US (occurrence: US)
  Receive Date: 20221013
  Receipt Date: 20221013
  Transmission Date: 20230112
  Serious: No
  Sender: FDA-Public Use
  Company Number: US-SA-SAC20221013000130

PATIENT
  Sex: Male

DRUGS (1)
  1. DUPIXENT [Suspect]
     Active Substance: DUPILUMAB
     Dosage: 600 MG LOADING DOSE
     Route: 058
     Dates: start: 20220929, end: 20220929

REACTIONS (2)
  - Vomiting [Unknown]
  - Arthropathy [Unknown]

NARRATIVE: CASE EVENT DATE: 20220901
